FAERS Safety Report 7325402-5 (Version None)
Quarter: 2011Q1

REPORT INFORMATION
  Report Type: 
  Country: None (occurrence: None)
  Receive Date: 20110218
  Receipt Date: 20110203
  Transmission Date: 20110831
  Serious: Yes (Other)
  Sender: FDA-Public Use
  Company Number: 2011MA001268

PATIENT
  Sex: Male

DRUGS (2)
  1. PREGABALIN [Suspect]
     Indication: GENERALISED ANXIETY DISORDER
  2. DIAZEPAM [Suspect]
     Indication: PRODUCT USED FOR UNKNOWN INDICATION

REACTIONS (2)
  - SUICIDAL IDEATION [None]
  - DRUG DIVERSION [None]
